FAERS Safety Report 20544004 (Version 1)
Quarter: 2022Q1

REPORT INFORMATION
  Report Type: Spontaneous
  Country: BR (occurrence: BR)
  Receive Date: 20220303
  Receipt Date: 20220303
  Transmission Date: 20220424
  Serious: Yes (Death, Hospitalization, Other)
  Sender: FDA-Public Use
  Company Number: BR-SA-SAC20220114000142

PATIENT
  Sex: Female

DRUGS (1)
  1. LANTUS SOLOSTAR [Suspect]
     Active Substance: INSULIN GLARGINE
     Route: 065

REACTIONS (7)
  - Respiratory failure [Fatal]
  - Gastric cancer [Fatal]
  - Diabetes mellitus [Fatal]
  - Diabetic ketoacidosis [Fatal]
  - Unevaluable event [Fatal]
  - Wound [Recovering/Resolving]
  - Fungal infection [Recovering/Resolving]
